FAERS Safety Report 19898755 (Version 2)
Quarter: 2022Q1

REPORT INFORMATION
  Report Type: Spontaneous
  Country: CA (occurrence: CA)
  Receive Date: 20210930
  Receipt Date: 20220321
  Transmission Date: 20220424
  Serious: Yes (Other)
  Sender: FDA-Public Use
  Company Number: CA-SA-SAC20210927000199

PATIENT
  Age: 60 Year
  Sex: Male

DRUGS (15)
  1. RANITIDINE [Suspect]
     Active Substance: RANITIDINE
     Dosage: 150 MG, QD
     Route: 048
  2. ALLOPURINOL [Suspect]
     Active Substance: ALLOPURINOL
     Dosage: 200 MG, QD
     Route: 048
  3. CICLESONIDE [Suspect]
     Active Substance: CICLESONIDE
  4. PREDNISONE [Suspect]
     Active Substance: PREDNISONE
     Indication: Asthma
     Dosage: UNK
  5. MONTELUKAST SODIUM [Suspect]
     Active Substance: MONTELUKAST SODIUM
     Dosage: 10 MG, QD
  6. BUDESONIDE [Suspect]
     Active Substance: BUDESONIDE
     Dosage: UNK
  7. THEOPHYLLINE [Suspect]
     Active Substance: THEOPHYLLINE
     Dosage: 400 MG, QD
  8. UMECLIDINIUM BROMIDE [Suspect]
     Active Substance: UMECLIDINIUM BROMIDE
     Indication: Asthma
     Dosage: 1 UNK, QD
     Route: 055
  9. ALBUTEROL\IPRATROPIUM [Suspect]
     Active Substance: ALBUTEROL\IPRATROPIUM
     Dosage: 1.0 MG, Q4H
  10. FLUTICASONE FUROATE [Suspect]
     Active Substance: FLUTICASONE FUROATE
     Indication: Asthma
     Dosage: UNK UNK, QD
  11. NUCALA [Suspect]
     Active Substance: MEPOLIZUMAB
     Indication: Asthma
  12. VENTOLIN [Suspect]
     Active Substance: ALBUTEROL SULFATE
     Indication: Asthma
     Dosage: UNK UNK, Q4H
  13. SYMBICORT [Suspect]
     Active Substance: BUDESONIDE\FORMOTEROL FUMARATE DIHYDRATE
     Indication: Asthma
     Dosage: 4 PUFFS, BID
  14. MEPOLIZUMAB [Suspect]
     Active Substance: MEPOLIZUMAB
     Dosage: 400 MG, QM
     Dates: start: 20190114
  15. RABEPRAZOLE [Concomitant]
     Active Substance: RABEPRAZOLE

REACTIONS (11)
  - Adverse drug reaction [Recovered/Resolved]
  - Asthma [Recovered/Resolved]
  - Dermatitis allergic [Recovered/Resolved]
  - Eczema [Recovered/Resolved]
  - Eye pruritus [Recovered/Resolved]
  - Glaucoma [Recovered/Resolved]
  - Ocular discomfort [Recovered/Resolved]
  - Ocular hyperaemia [Recovered/Resolved]
  - Seasonal allergy [Recovered/Resolved]
  - Wheezing [Recovered/Resolved]
  - Therapeutic product effect incomplete [Recovered/Resolved]
